FAERS Safety Report 9231543 (Version 1)
Quarter: 2013Q2

REPORT INFORMATION
  Report Type: Spontaneous
  Country: IN (occurrence: IN)
  Receive Date: 20130415
  Receipt Date: 20130415
  Transmission Date: 20140414
  Serious: Yes (Other)
  Sender: FDA-Public Use
  Company Number: IN-GLAXOSMITHKLINE-B0883361A

PATIENT
  Age: 75 Year
  Sex: Male

DRUGS (4)
  1. ARIXTRA [Suspect]
     Indication: THROMBOSIS PROPHYLAXIS
     Dosage: 2.5MG PER DAY
     Route: 065
  2. ANTIDIABETIC [Concomitant]
     Indication: DIABETES MELLITUS
  3. ANTIHYPERTENSIVE [Concomitant]
     Indication: HYPERTENSION
  4. ASPIRIN [Concomitant]

REACTIONS (3)
  - Haemorrhage [Recovered/Resolved]
  - Renal failure acute [Unknown]
  - Hypovolaemia [Unknown]
